FAERS Safety Report 25423527 (Version 1)
Quarter: 2025Q2

REPORT INFORMATION
  Report Type: Spontaneous
  Country: IN (occurrence: IN)
  Receive Date: 20250611
  Receipt Date: 20250611
  Transmission Date: 20250717
  Serious: Yes (Hospitalization)
  Sender: ELI LILLY AND COMPANY
  Company Number: IN-ELI_LILLY_AND_COMPANY-IN202506001476

PATIENT
  Sex: Female

DRUGS (1)
  1. MOUNJARO [Suspect]
     Active Substance: TIRZEPATIDE
     Indication: Product used for unknown indication
     Dosage: 2.5 MG, WEEKLY (1/W)
     Route: 058

REACTIONS (2)
  - Oxygen saturation decreased [Unknown]
  - Coma [Unknown]
